FAERS Safety Report 8904701 (Version 1)
Quarter: 2012Q4

REPORT INFORMATION
  Report Type: 
  Country: US (occurrence: US)
  Receive Date: 20121113
  Receipt Date: 20121113
  Transmission Date: 20130627
  Serious: No
  Sender: FDA-Public Use
  Company Number: US-GLAXOSMITHKLINE-A0972764A

PATIENT
  Age: 67 Year
  Sex: Male

DRUGS (11)
  1. CARVEDILOL [Suspect]
     Indication: PALPITATIONS
     Dosage: 25MG Twice per day
     Route: 048
     Dates: start: 2008
  2. ZITHROMAX [Concomitant]
  3. PANTOPRAZOLE [Concomitant]
  4. WARFARIN [Concomitant]
  5. ALBUTEROL [Concomitant]
  6. SYNTHROID [Concomitant]
  7. XANAX [Concomitant]
  8. ASPIRIN [Concomitant]
  9. LIPITOR [Concomitant]
  10. FLONASE [Concomitant]
  11. SPIRIVA [Concomitant]

REACTIONS (2)
  - Palpitations [Not Recovered/Not Resolved]
  - Dizziness [Unknown]
